FAERS Safety Report 4523120-X (Version None)
Quarter: 2004Q4

REPORT INFORMATION
  Report Type: 
  Country: None (occurrence: None)
  Receive Date: 20041207
  Receipt Date: 20041207
  Transmission Date: 20050328
  Serious: Yes (Other)
  Sender: FDA-Public Use
  Company Number: None

PATIENT
  Sex: Female

DRUGS (3)
  1. LAMICTAL [Suspect]
     Indication: BIPOLAR DISORDER
     Dosage: 3 PO DAILY
     Route: 048
     Dates: start: 20031120
  2. XANAX XR [Suspect]
     Indication: PANIC DISORDER
     Dosage: 1 PO BID
     Route: 048
     Dates: start: 20031120
  3. XANAX XR [Suspect]
     Indication: SOCIAL PHOBIA
     Dosage: 1 PO BID
     Route: 048
     Dates: start: 20031120

REACTIONS (2)
  - CHEST PAIN [None]
  - PLEURISY [None]
